FAERS Safety Report 11118624 (Version 1)
Quarter: 2015Q2

REPORT INFORMATION
  Report Type: Spontaneous
  Country: GB (occurrence: GB)
  Receive Date: 20150518
  Receipt Date: 20150518
  Transmission Date: 20150821
  Serious: Yes (Disabling)
  Sender: FDA-Public Use
  Company Number: GB-TEVA-561895ACC

PATIENT
  Age: 63 Year
  Sex: Male
  Weight: 103 kg

DRUGS (8)
  1. FELODIPINE. [Concomitant]
     Active Substance: FELODIPINE
     Indication: HYPERTENSION
     Dosage: 1 DOSAGE FORMS DAILY;
     Dates: start: 20141212
  2. LANSOPRAZOLE. [Concomitant]
     Active Substance: LANSOPRAZOLE
     Indication: GASTROOESOPHAGEAL REFLUX DISEASE
     Dosage: 1 DOSAGE FORMS DAILY; EACH MORNING
     Dates: start: 20141212, end: 20150216
  3. PERINDOPRIL ERBUMINE. [Concomitant]
     Active Substance: PERINDOPRIL ERBUMINE
     Indication: HYPERTENSION
     Dosage: 1 DOSAGE FORMS DAILY; EVERY MORNING
     Dates: start: 20141212, end: 20150327
  4. TADALAFIL [Concomitant]
     Active Substance: TADALAFIL
     Dosage: DAILY FOR UROLOGICAL
     Dates: start: 20141212, end: 20150216
  5. CAVERJECT [Concomitant]
     Active Substance: ALPROSTADIL
     Dosage: USE AS DIRECTED
     Dates: start: 20141212, end: 20150216
  6. LOSARTAN [Suspect]
     Active Substance: LOSARTAN
     Indication: PRODUCT USED FOR UNKNOWN INDICATION
     Route: 065
  7. PRAVASTATIN [Concomitant]
     Active Substance: PRAVASTATIN\PRAVASTATIN SODIUM
     Dosage: 1 DOSAGE FORMS DAILY; AT NIGHT
     Dates: start: 20141212
  8. CIALIS [Concomitant]
     Active Substance: TADALAFIL
     Dosage: USE AS DIRECTED
     Dates: start: 20150216

REACTIONS (2)
  - Myalgia [Recovered/Resolved]
  - Joint stiffness [Recovered/Resolved]

NARRATIVE: CASE EVENT DATE: 20150326
